FAERS Safety Report 11425083 (Version 1)
Quarter: 2015Q3

REPORT INFORMATION
  Report Type: Report from Study
  Country: AU (occurrence: AU)
  Receive Date: 20150827
  Receipt Date: 20150827
  Transmission Date: 20151125
  Serious: Yes (Hospitalization, Other)
  Sender: FDA-Public Use
  Company Number: AU-REGENERON PHARMACEUTICALS, INC.-2015-11457

PATIENT

DRUGS (1)
  1. EYLEA [Suspect]
     Active Substance: AFLIBERCEPT
     Indication: NEOVASCULAR AGE-RELATED MACULAR DEGENERATION
     Dosage: DAILY DOSE 2 MG
     Route: 031
     Dates: start: 20140910

REACTIONS (12)
  - Haemorrhoids [Recovering/Resolving]
  - Ocular hyperaemia [Recovered/Resolved]
  - Intestinal prolapse [Recovering/Resolving]
  - Eye pain [Unknown]
  - Arrhythmia [Unknown]
  - Intestinal polyp [Recovering/Resolving]
  - Vision blurred [Unknown]
  - Photophobia [Unknown]
  - Metamorphopsia [Unknown]
  - Inappropriate schedule of drug administration [Unknown]
  - Rectal haemorrhage [Unknown]
  - Lower gastrointestinal haemorrhage [Recovering/Resolving]

NARRATIVE: CASE EVENT DATE: 20150526
